FAERS Safety Report 6815714-3 (Version None)
Quarter: 2010Q3

REPORT INFORMATION
  Report Type: 
  Country: None (occurrence: None)
  Receive Date: 20100702
  Receipt Date: 20100622
  Transmission Date: 20110219
  Serious: Yes (Hospitalization)
  Sender: FDA-Public Use
  Company Number: US-ABBOTT-10P-163-0653196-00

PATIENT
  Sex: Female
  Weight: 72.64 kg

DRUGS (8)
  1. ZEMPLAR [Suspect]
     Indication: RENAL IMPAIRMENT
  2. VITAMINS [Concomitant]
     Indication: PRODUCT USED FOR UNKNOWN INDICATION
  3. AMIODARONE [Concomitant]
     Indication: HEART RATE INCREASED
  4. SYNTHROID [Concomitant]
     Indication: HYPOTHYROIDISM
  5. LASIX [Concomitant]
     Indication: FLUID RETENTION
  6. POTASSIUM CHLORIDE [Concomitant]
     Indication: DIURETIC THERAPY
  7. XANAX [Concomitant]
     Indication: ANXIETY
  8. VICODIN [Concomitant]
     Indication: BACK PAIN

REACTIONS (3)
  - CEREBROVASCULAR ACCIDENT [None]
  - FALL [None]
  - HAEMATOMA [None]
